FAERS Safety Report 6647899-6 (Version None)
Quarter: 2010Q1

REPORT INFORMATION
  Report Type: 
  Country: None (occurrence: None)
  Receive Date: 20100324
  Receipt Date: 20100318
  Transmission Date: 20100710
  Serious: Yes (Other)
  Sender: FDA-Public Use
  Company Number: US-B.I. PHARMACEUTICALS,INC./RIDGEFIELD-2010-BP-02666BP

PATIENT
  Sex: Male

DRUGS (8)
  1. SPIRIVA [Suspect]
     Indication: CHRONIC OBSTRUCTIVE PULMONARY DISEASE
     Dosage: 18 MCG
     Dates: start: 20100201, end: 20100201
  2. SPIRIVA [Suspect]
     Indication: FIBROSIS
  3. VITAMINS [Concomitant]
     Indication: PROPHYLAXIS
  4. TOPROL-XL [Concomitant]
  5. LANOXIN [Concomitant]
  6. LASIX [Concomitant]
  7. BABY ASPIRIN [Concomitant]
  8. POTASSIUM [Concomitant]

REACTIONS (6)
  - ABDOMINAL PAIN UPPER [None]
  - DIPLOPIA [None]
  - DYSPHONIA [None]
  - HEADACHE [None]
  - NAUSEA [None]
  - UNEVALUABLE EVENT [None]
